FAERS Safety Report 4320178-8 (Version None)
Quarter: 2004Q1

REPORT INFORMATION
  Report Type: 
  Country: None (occurrence: None)
  Receive Date: 20040317
  Receipt Date: 20040309
  Transmission Date: 20041129
  Serious: Yes (Hospitalization)
  Sender: FDA-Public Use
  Company Number: 2004008031

PATIENT
  Age: 33 Year
  Sex: Male

DRUGS (5)
  1. ZITHROMAX [Suspect]
     Indication: UPPER RESPIRATORY TRACT INFLAMMATION
     Dosage: 500 MG, DAILY, ORAL
     Route: 048
     Dates: start: 20040204, end: 20040204
  2. FENOPROFEN CALCIUM [Suspect]
     Indication: UPPER RESPIRATORY TRACT INFLAMMATION
     Dosage: 1200 MG, TID, ORAL
     Route: 048
     Dates: start: 20040204, end: 20040204
  3. PL GRAN. (CAFFEINE, SALICYLAMIDE, PARACETAMOL, PROMETHAZINE METHYLENE [Suspect]
     Indication: UPPER RESPIRATORY TRACT INFLAMMATION
     Dosage: TID, ORAL
     Route: 047
     Dates: start: 20040204, end: 20040204
  4. VALSARTAN [Concomitant]
  5. ATENOLOL [Concomitant]

REACTIONS (10)
  - BLOOD CREATININE INCREASED [None]
  - BLOOD POTASSIUM INCREASED [None]
  - BLOOD UREA INCREASED [None]
  - DIZZINESS [None]
  - DRUG ERUPTION [None]
  - ERYTHEMA [None]
  - FEELING ABNORMAL [None]
  - LABORATORY TEST ABNORMAL [None]
  - PRURITUS [None]
  - RESPIRATORY DISORDER [None]
